FAERS Safety Report 13793142 (Version 1)
Quarter: 2017Q3

REPORT INFORMATION
  Report Type: Spontaneous
  Country: US (occurrence: US)
  Receive Date: 20170726
  Receipt Date: 20170726
  Transmission Date: 20171127
  Serious: No
  Sender: FDA-Public Use
  Company Number: US-HORIZON-PEN-0325-2017

PATIENT
  Age: 91 Year
  Sex: Female

DRUGS (3)
  1. PENNSAID [Suspect]
     Active Substance: DICLOFENAC SODIUM
     Indication: OSTEOARTHRITIS
     Dosage: ONCE A DAY
     Route: 061
  2. AMIODARONE [Concomitant]
     Active Substance: AMIODARONE
  3. ENALAPRIL [Concomitant]
     Active Substance: ENALAPRIL

REACTIONS (2)
  - Off label use [Unknown]
  - Skin tightness [Unknown]
